FAERS Safety Report 10570275 (Version 1)
Quarter: 2014Q4

REPORT INFORMATION
  Report Type: Spontaneous
  Country: BR (occurrence: None)
  Receive Date: 20141105
  Receipt Date: 20141105
  Transmission Date: 20150529
  Serious: Yes (Death, Hospitalization)
  Sender: FDA-Public Use
  Company Number: FK201404759

PATIENT
  Age: 50 Year
  Sex: Male

DRUGS (3)
  1. CISPLATIN. [Concomitant]
     Active Substance: CISPLATIN
  2. BLEOMYCIN [Suspect]
     Active Substance: BLEOMYCIN SULFATE
     Indication: TESTIS CANCER
  3. ETOPOSIDE. [Concomitant]
     Active Substance: ETOPOSIDE

REACTIONS (9)
  - Tachypnoea [None]
  - Acute kidney injury [None]
  - Condition aggravated [None]
  - Pneumomediastinum [None]
  - Subcutaneous emphysema [None]
  - Pneumothorax [None]
  - Interstitial lung disease [None]
  - Septic shock [None]
  - Tachycardia [None]
